FAERS Safety Report 8942740 (Version 3)
Quarter: 2014Q1

REPORT INFORMATION
  Report Type: Spontaneous
  Country: US (occurrence: US)
  Receive Date: 20121204
  Receipt Date: 20140325
  Transmission Date: 20141002
  Serious: Yes (Hospitalization)
  Sender: FDA-Public Use
  Company Number: US-BAYER-2012-126345

PATIENT
  Age: 18 Year
  Sex: Female
  Weight: 88.44 kg

DRUGS (13)
  1. YASMIN [Suspect]
     Indication: PREMENSTRUAL SYNDROME
     Dosage: UNK
     Dates: start: 20070101, end: 2008
  2. OCELLA [Suspect]
     Indication: PREMENSTRUAL SYNDROME
     Dosage: UNK
     Dates: start: 2007, end: 2008
  3. OMEPRAZOLE [Concomitant]
     Indication: GASTROOESOPHAGEAL REFLUX DISEASE
     Dosage: UNK
     Dates: start: 200701
  4. CHERATUSSIN [AMMONIUM CHLORIDE,DEXTROMETHORPHAN HYDROBROMIDE,SODIU [Concomitant]
     Indication: COUGH
     Dosage: UNK
     Route: 048
     Dates: start: 20071108
  5. PROAIR HFA [Concomitant]
     Indication: WHEEZING
     Dosage: UNK
     Dates: start: 20071108
  6. PROAIR HFA [Concomitant]
     Indication: COUGH
  7. OXYCODONE/APAP [Concomitant]
     Indication: PAIN
     Dosage: UNK
     Route: 048
     Dates: start: 20071108
  8. OXYCODONE/APAP [Concomitant]
     Indication: COUGH
  9. DICLOFENAC SODIUM [Concomitant]
     Indication: HEADACHE
     Dosage: UNK
     Route: 048
     Dates: start: 20071211
  10. HYDROCODONE W/APAP [Concomitant]
     Indication: PAIN
     Dosage: UNK
     Route: 048
     Dates: start: 20071211, end: 20071213
  11. PROVENTIL [Concomitant]
     Dosage: UNK
     Dates: start: 20071213
  12. LORATADIN [Concomitant]
     Indication: MULTIPLE ALLERGIES
     Dosage: 10 MG, UNK
     Route: 048
     Dates: start: 20071213
  13. PRILOSEC [Concomitant]
     Indication: GASTROOESOPHAGEAL REFLUX DISEASE
     Dosage: 20 MG, QD
     Route: 048
     Dates: start: 20071213

REACTIONS (9)
  - Cholecystectomy [None]
  - Off label use [None]
  - Pain [None]
  - Injury [None]
  - General physical health deterioration [None]
  - Anxiety [None]
  - Anhedonia [None]
  - Emotional distress [None]
  - Pain [None]
